FAERS Safety Report 10041102 (Version 1)
Quarter: 2014Q1

REPORT INFORMATION
  Report Type: Spontaneous
  Country: US (occurrence: US)
  Receive Date: 20140327
  Receipt Date: 20140327
  Transmission Date: 20141002
  Serious: Yes (Hospitalization, Other)
  Sender: FDA-Public Use
  Company Number: US-SA-2014SA035356

PATIENT
  Sex: Male

DRUGS (3)
  1. ALLEGRA [Suspect]
     Dosage: TAKEN FROM- MANY YEARS
     Route: 048
  2. ALL OTHER THERAPEUTIC PRODUCTS [Concomitant]
     Route: 065
  3. SLOW-MAG [Concomitant]
     Dosage: TAKEN FROM- MANY YEARS
     Route: 065

REACTIONS (3)
  - Cardiac disorder [Unknown]
  - Heart rate irregular [Unknown]
  - Drug administration error [Unknown]
